FAERS Safety Report 8777323 (Version 4)
Quarter: 2012Q4

REPORT INFORMATION
  Report Type: 
  Country: US (occurrence: US)
  Receive Date: 20120911
  Receipt Date: 20121126
  Transmission Date: 20130627
  Serious: Yes (Other)
  Sender: FDA-Public Use
  Company Number: US-PFIZER INC-2012219527

PATIENT
  Age: 73 Year
  Sex: Female
  Weight: 73 kg

DRUGS (3)
  1. TORISEL [Suspect]
     Indication: KIDNEY CANCER
     Dosage: 25 mg, weekly
     Route: 042
     Dates: start: 201108
  2. TORISEL [Suspect]
     Indication: METASTATIC RENAL CELL CARCINOMA
  3. BENADRYL [Concomitant]
     Dosage: UNK

REACTIONS (3)
  - Hypertension [Recovered/Resolved]
  - Nail disorder [Not Recovered/Not Resolved]
  - Onychoclasis [Not Recovered/Not Resolved]
